FAERS Safety Report 12809465 (Version 1)
Quarter: 2016Q4

REPORT INFORMATION
  Report Type: Report from Study
  Country: US (occurrence: US)
  Receive Date: 20161005
  Receipt Date: 20161005
  Transmission Date: 20170207
  Serious: Yes (Other)
  Sender: FDA-Public Use
  Company Number: US-ROCHE-1836665

PATIENT
  Age: 55 Year
  Sex: Female
  Weight: 96 kg

DRUGS (24)
  1. BEVACIZUMAB [Suspect]
     Active Substance: BEVACIZUMAB
     Indication: OVARIAN EPITHELIAL CANCER
     Dosage: CYCLE 1
     Route: 042
     Dates: start: 20150326
  2. BEVACIZUMAB [Suspect]
     Active Substance: BEVACIZUMAB
     Dosage: CYCLE 12
     Route: 042
     Dates: start: 20151112
  3. VELIPARIB [Suspect]
     Active Substance: VELIPARIB
     Dosage: CYCLE 6
     Route: 042
     Dates: start: 20150709
  4. VELIPARIB [Suspect]
     Active Substance: VELIPARIB
     Dosage: CYCLE 11
     Route: 042
     Dates: start: 20151022
  5. VELIPARIB [Suspect]
     Active Substance: VELIPARIB
     Dosage: CYCLE 3
     Route: 042
     Dates: start: 20150507
  6. VELIPARIB [Suspect]
     Active Substance: VELIPARIB
     Dosage: CYCLE 10
     Route: 042
     Dates: start: 20151001
  7. BEVACIZUMAB [Suspect]
     Active Substance: BEVACIZUMAB
     Dosage: CYCLE 10
     Route: 042
     Dates: start: 20151001
  8. VELIPARIB [Suspect]
     Active Substance: VELIPARIB
     Dosage: CYCLE 2
     Route: 042
     Dates: start: 20150416
  9. VELIPARIB [Suspect]
     Active Substance: VELIPARIB
     Dosage: CYCLE 5
     Route: 042
     Dates: start: 20150618
  10. VELIPARIB [Suspect]
     Active Substance: VELIPARIB
     Dosage: CYCLE 9
     Route: 042
     Dates: start: 20150910
  11. BEVACIZUMAB [Suspect]
     Active Substance: BEVACIZUMAB
     Dosage: CYCLE 9
     Route: 042
     Dates: start: 20150910
  12. VELIPARIB [Suspect]
     Active Substance: VELIPARIB
     Dosage: CYCLE 4
     Route: 042
     Dates: start: 20150526
  13. VELIPARIB [Suspect]
     Active Substance: VELIPARIB
     Dosage: CYCLE 12
     Route: 042
     Dates: start: 20151112
  14. BEVACIZUMAB [Suspect]
     Active Substance: BEVACIZUMAB
     Dosage: CYCLE 5
     Route: 042
     Dates: start: 20150618
  15. BEVACIZUMAB [Suspect]
     Active Substance: BEVACIZUMAB
     Dosage: CYCLE 7
     Route: 042
     Dates: start: 20150730
  16. BEVACIZUMAB [Suspect]
     Active Substance: BEVACIZUMAB
     Dosage: CYCLE 3
     Route: 042
     Dates: start: 20150507
  17. BEVACIZUMAB [Suspect]
     Active Substance: BEVACIZUMAB
     Dosage: CYCLE 4
     Route: 042
     Dates: start: 20150526
  18. BEVACIZUMAB [Suspect]
     Active Substance: BEVACIZUMAB
     Dosage: CYCLE 8
     Route: 042
     Dates: start: 20150820
  19. BEVACIZUMAB [Suspect]
     Active Substance: BEVACIZUMAB
     Dosage: CYCLE 11
     Route: 042
     Dates: start: 20151022
  20. BEVACIZUMAB [Suspect]
     Active Substance: BEVACIZUMAB
     Dosage: CYCLE 2
     Route: 042
     Dates: start: 20150416
  21. BEVACIZUMAB [Suspect]
     Active Substance: BEVACIZUMAB
     Dosage: CYCLE 6
     Route: 042
     Dates: start: 20150709
  22. VELIPARIB [Suspect]
     Active Substance: VELIPARIB
     Indication: OVARIAN EPITHELIAL CANCER
     Dosage: CYCLE 1
     Route: 042
     Dates: start: 20150326
  23. VELIPARIB [Suspect]
     Active Substance: VELIPARIB
     Dosage: CYCLE 7
     Route: 042
     Dates: start: 20150730
  24. VELIPARIB [Suspect]
     Active Substance: VELIPARIB
     Dosage: CYCLE 8
     Route: 042
     Dates: start: 20150820

REACTIONS (5)
  - Neutrophil count decreased [Unknown]
  - Hypertension [Unknown]
  - Hyponatraemia [Unknown]
  - White blood cell count decreased [Unknown]
  - Anaemia [Unknown]
